FAERS Safety Report 8512104 (Version 3)
Quarter: 2013Q2

REPORT INFORMATION
  Report Type: Spontaneous
  Country: US (occurrence: US)
  Receive Date: 20120413
  Receipt Date: 20130621
  Transmission Date: 20140414
  Serious: No
  Sender: FDA-Public Use
  Company Number: US-ASTRAZENECA-2011SE41577

PATIENT
  Sex: Female
  Weight: 73.5 kg

DRUGS (5)
  1. NEXIUM [Suspect]
     Dosage: TAKING EVERYDAY
     Route: 048
     Dates: start: 2001
  2. NEXIUM [Suspect]
     Route: 048
  3. ZANTAC [Concomitant]
  4. PEPCID [Concomitant]
  5. DIOVAN [Concomitant]

REACTIONS (6)
  - Osteoporosis [Unknown]
  - Bone density decreased [Unknown]
  - Multiple fractures [Unknown]
  - Wrist fracture [Unknown]
  - Vitamin D deficiency [Unknown]
  - Cataract [Unknown]
